FAERS Safety Report 4274580-3 (Version None)
Quarter: 2004Q1

REPORT INFORMATION
  Report Type: 
  Country: None (occurrence: None)
  Receive Date: 20040120
  Receipt Date: 20040120
  Transmission Date: 20041129
  Serious: Yes (Hospitalization)
  Sender: FDA-Public Use
  Company Number: None

PATIENT
  Age: 18 Year
  Sex: Female
  Weight: 54.3 kg

DRUGS (11)
  1. L-ASPARAGINASE [Suspect]
     Indication: ACUTE LYMPHOCYTIC LEUKAEMIA
     Dates: start: 20031120, end: 20031218
  2. PREDNISONE [Suspect]
  3. VINCRISTINE [Suspect]
  4. DAUNOMYCIN [Suspect]
  5. METHOTREXATE [Suspect]
  6. PERI-COLACE [Concomitant]
  7. PEPCID [Concomitant]
  8. BACTRIM [Concomitant]
  9. PERIDEX [Concomitant]
  10. TOPAMAX [Concomitant]
  11. NYSTATIN [Concomitant]

REACTIONS (1)
  - ORTHOSTATIC HYPOTENSION [None]
